FAERS Safety Report 23919403 (Version 1)
Quarter: 2024Q2

REPORT INFORMATION
  Report Type: Spontaneous
  Country: ES (occurrence: ES)
  Receive Date: 20240530
  Receipt Date: 20240530
  Transmission Date: 20240716
  Serious: Yes (Hospitalization, Other)
  Sender: FDA-Public Use
  Company Number: ES-ROCHE-2963834

PATIENT
  Age: 78 Year
  Sex: Male
  Weight: 86 kg

DRUGS (33)
  1. CARBOPLATIN [Suspect]
     Active Substance: CARBOPLATIN
     Indication: Non-small cell lung cancer metastatic
     Dosage: 653.74 MG, EVERY 3 WEEKS
     Route: 042
     Dates: start: 20210621
  2. CARBOPLATIN [Suspect]
     Active Substance: CARBOPLATIN
     Dosage: 544.78 MG, EVERY 3 WEEKS
     Route: 042
     Dates: start: 20210906
  3. PEMETREXED [Suspect]
     Active Substance: PEMETREXED
     Indication: Non-small cell lung cancer metastatic
     Dosage: 955 MG, EVERY 3 WEEKS
     Route: 042
     Dates: start: 20210621
  4. PEMETREXED [Suspect]
     Active Substance: PEMETREXED
     Dosage: 716.25 MG, EVERY 3 WEEKS
     Route: 042
     Dates: start: 20211025
  5. MAGNESIUM [Concomitant]
     Active Substance: MAGNESIUM
     Indication: Hypomagnesaemia
     Dosage: UNK
     Dates: start: 20210830
  6. ALLOPURINOL [Concomitant]
     Active Substance: ALLOPURINOL
     Indication: Hyperuricaemia
     Dosage: 300 MG, 1X/DAY
  7. OMEPRAZOLE [Concomitant]
     Active Substance: DONEPEZIL HYDROCHLORIDE\OMEPRAZOLE\OMEPRAZOLE MAGNESIUM
     Indication: Prophylaxis
     Dosage: 20 MG, 1X/DAY
  8. XYLOCAINE [Concomitant]
     Active Substance: LIDOCAINE HYDROCHLORIDE\LIDOCAINE HYDROCHLORIDE ANHYDROUS
     Indication: Anal fissure
     Dosage: UNK
     Dates: start: 20211004
  9. FUROSEMIDE [Concomitant]
     Active Substance: FUROSEMIDE
     Indication: Dyspnoea
     Dosage: 1 AMPULE
     Dates: start: 20211121, end: 20211129
  10. RECTIV [Concomitant]
     Active Substance: NITROGLYCERIN
     Indication: Anal fissure
     Dosage: UNK
     Dates: start: 20211004
  11. EDOXABAN TOSYLATE [Concomitant]
     Active Substance: EDOXABAN TOSYLATE
     Indication: Prophylaxis
     Dosage: 560 MG, 1X/DAY
  12. CLAVULANIC ACID [Concomitant]
     Active Substance: CLAVULANIC ACID
     Indication: Pneumonitis
     Dosage: 200 MG
     Dates: start: 20211121, end: 20211129
  13. BUDESONIDE [Concomitant]
     Active Substance: BUDESONIDE
     Indication: Benign prostatic hyperplasia
     Dosage: 2 DF (INHALATIONS), 2X/DAY
  14. BUDESONIDE [Concomitant]
     Active Substance: BUDESONIDE
     Indication: Chronic obstructive pulmonary disease
  15. SULMETIN [Concomitant]
     Indication: Hypomagnesaemia
     Dosage: UNK
     Dates: start: 20210830
  16. PEMBROLIZUMAB [Concomitant]
     Active Substance: PEMBROLIZUMAB
     Indication: Non-small cell lung cancer metastatic
     Dosage: UNK, EVERY 3 WEEKS
     Dates: start: 20210621
  17. PEMBROLIZUMAB [Concomitant]
     Active Substance: PEMBROLIZUMAB
     Dosage: UNK, EVERY 3 WEEKS
     Dates: start: 20211025
  18. OLODATEROL HYDROCHLORIDE\TIOTROPIUM BROMIDE MONOHYDRATE [Concomitant]
     Active Substance: OLODATEROL HYDROCHLORIDE\TIOTROPIUM BROMIDE MONOHYDRATE
     Indication: Chronic obstructive pulmonary disease
     Dosage: 1 DF(INHALATION), 1X/DAY
  19. METHYLPREDNISOLONE [Concomitant]
     Active Substance: METHYLPREDNISOLONE
     Indication: Dyspnoea
     Dosage: UNK, 1X/DAY
     Dates: start: 20211121
  20. MOVICOL [Concomitant]
     Active Substance: POLYETHYLENE GLYCOL 3350\POTASSIUM CHLORIDE\SODIUM BICARBONATE\SODIUM CHLORIDE
     Indication: Constipation
     Dosage: UNK
     Dates: start: 20210712
  21. FUROSEMIDE [Concomitant]
     Active Substance: FUROSEMIDE
     Indication: Oedema
     Dosage: UNK
     Dates: start: 20210712
  22. OXYGEN [Concomitant]
     Active Substance: OXYGEN
     Indication: Chronic obstructive pulmonary disease
     Dosage: UNK, 1X/DAY (3 OTHER)
  23. CYANOCOBALAMIN [Concomitant]
     Active Substance: CYANOCOBALAMIN
     Indication: Prophylaxis
     Dosage: 1 DF (INHALATION)
     Dates: start: 20210621
  24. FOLIC ACID [Concomitant]
     Active Substance: FOLIC ACID
     Indication: Prophylaxis
     Dosage: 5 MG, 1X/DAY
     Dates: start: 20210614
  25. SOLIFENACIN\TAMSULOSIN [Concomitant]
     Active Substance: SOLIFENACIN\TAMSULOSIN
     Indication: Prophylaxis
     Dosage: 6 MG, 1X/DAY
  26. TIRAGOLUMAB [Concomitant]
     Active Substance: TIRAGOLUMAB
     Indication: Non-small cell lung cancer metastatic
     Dosage: UNK, EVERY 3 WEEKS
     Dates: start: 20210621
  27. TIRAGOLUMAB [Concomitant]
     Active Substance: TIRAGOLUMAB
     Dosage: UNK, EVERY 3 WEEKS
     Dates: start: 20211025
  28. BENZOCAINE\EPHEDRINE [Concomitant]
     Active Substance: BENZOCAINE\EPHEDRINE
     Indication: Haemorrhoids
     Dosage: UNK
     Dates: start: 20210810
  29. BENZOCAINE\EPHEDRINE [Concomitant]
     Active Substance: BENZOCAINE\EPHEDRINE
     Indication: Prophylaxis
  30. AMOXICILLIN [Concomitant]
     Active Substance: AMOXICILLIN
     Indication: Pneumonitis
     Dosage: 1000 MG
     Dates: start: 20211121, end: 20211129
  31. SIMVASTATIN [Concomitant]
     Active Substance: SIMVASTATIN
     Indication: Dyslipidaemia
     Dosage: 20 MG, 1X/DAY
  32. ATEZOLIZUMAB [Concomitant]
     Active Substance: ATEZOLIZUMAB
     Indication: Non-small cell lung cancer metastatic
     Dosage: UNK, EVERY 3 WEEKS
     Dates: start: 20210621
  33. ATEZOLIZUMAB [Concomitant]
     Active Substance: ATEZOLIZUMAB
     Dosage: UNK, EVERY 3 WEEKS
     Dates: start: 20211025

REACTIONS (1)
  - Infective exacerbation of chronic obstructive airways disease [Recovered/Resolved]

NARRATIVE: CASE EVENT DATE: 20211121
